FAERS Safety Report 8584850 (Version 3)
Quarter: 2013Q2

REPORT INFORMATION
  Report Type: Spontaneous
  Country: BR (occurrence: BR)
  Receive Date: 20120530
  Receipt Date: 20130528
  Transmission Date: 20140414
  Serious: Yes (Other)
  Sender: FDA-Public Use
  Company Number: BR-AMGEN-BRASP2012031954

PATIENT
  Age: 53 Year
  Sex: Female
  Weight: 57 kg

DRUGS (9)
  1. ENBREL [Suspect]
     Indication: RHEUMATOID ARTHRITIS
     Dosage: 50 MG, ONCE WEEKLY
     Route: 058
     Dates: start: 201205
  2. ENBREL [Suspect]
     Dosage: UNK
  3. PREDNISONE [Concomitant]
     Indication: SJOGREN^S SYNDROME
     Dosage: UNK
     Dates: start: 1993
  4. TYLENOL                            /00020001/ [Concomitant]
     Dosage: UNK
  5. METHOTREXATE [Concomitant]
     Dosage: UNK
  6. LINSEED                            /01649402/ [Concomitant]
     Indication: SJOGREN^S SYNDROME
     Dosage: UNK
  7. PARACETAMOL [Concomitant]
     Dosage: UNK
  8. COLLYRIUM                          /00452801/ [Concomitant]
     Dosage: UNK
  9. RITUXIMAB [Concomitant]
     Dosage: UNK
     Dates: start: 201304

REACTIONS (7)
  - Mass [Unknown]
  - Oral mucosal erythema [Unknown]
  - Erythema [Unknown]
  - Wrong technique in drug usage process [Recovered/Resolved]
  - Injection site swelling [Unknown]
  - Injection site pain [Recovering/Resolving]
  - Injection site erythema [Unknown]
